FAERS Safety Report 13225537 (Version 1)
Quarter: 2017Q1

REPORT INFORMATION
  Report Type: Spontaneous
  Country: US (occurrence: US)
  Receive Date: 20170211
  Receipt Date: 20170211
  Transmission Date: 20170428
  Serious: No
  Sender: FDA-Public Use
  Company Number: None

PATIENT
  Age: 67 Year
  Sex: Female

DRUGS (1)
  1. ENBREL [Suspect]
     Active Substance: ETANERCEPT
     Indication: PRODUCT USED FOR UNKNOWN INDICATION
     Route: 058
     Dates: start: 20160316

REACTIONS (4)
  - Respiratory tract infection [None]
  - Musculoskeletal stiffness [None]
  - Urinary tract infection [None]
  - Depression [None]

NARRATIVE: CASE EVENT DATE: 20160901
